FAERS Safety Report 4916465-2 (Version None)
Quarter: 2006Q1

REPORT INFORMATION
  Report Type: 
  Country: None (occurrence: None)
  Receive Date: 20060220
  Receipt Date: 20051208
  Transmission Date: 20060701
  Serious: Yes (Death)
  Sender: FDA-Public Use
  Company Number: 2005AC01915

PATIENT
  Age: 18687 Day
  Sex: Male
  Weight: 70 kg

DRUGS (5)
  1. SEROQUEL [Suspect]
     Route: 048
     Dates: start: 20051027
  2. REMERGON 30 [Concomitant]
     Indication: DEPRESSION
     Route: 048
     Dates: start: 20051027
  3. TEMESTA [Concomitant]
     Indication: DEPRESSION
  4. AMOXICILINE [Concomitant]
  5. SERENASE [Concomitant]
     Indication: ANXIETY
     Route: 048
     Dates: start: 20051027

REACTIONS (5)
  - ABDOMINAL PAIN UPPER [None]
  - CARDIOGENIC SHOCK [None]
  - HAEMORRHAGE [None]
  - MYOCARDIAL INFARCTION [None]
  - NECK PAIN [None]
